FAERS Safety Report 16953860 (Version 1)
Quarter: 2019Q4

REPORT INFORMATION
  Report Type: Spontaneous
  Country: US (occurrence: US)
  Receive Date: 20191023
  Receipt Date: 20191023
  Transmission Date: 20200122
  Serious: No
  Sender: FDA-Public Use
  Company Number: US-009507513-1910USA013506

PATIENT
  Age: 84 Year
  Sex: Male

DRUGS (1)
  1. JANUVIA [Suspect]
     Active Substance: SITAGLIPTIN PHOSPHATE
     Dosage: UNK
     Dates: end: 2019

REACTIONS (2)
  - Blood glucose abnormal [Recovering/Resolving]
  - Renal function test abnormal [Recovering/Resolving]
